FAERS Safety Report 9835195 (Version 1)
Quarter: 2014Q1

REPORT INFORMATION
  Report Type: Spontaneous
  Country: US (occurrence: US)
  Receive Date: 20140122
  Receipt Date: 20140122
  Transmission Date: 20141002
  Serious: No
  Sender: FDA-Public Use
  Company Number: US-BRISTOL-MYERS SQUIBB COMPANY-19858117

PATIENT
  Age: 65 Year
  Sex: Male
  Weight: 108.84 kg

DRUGS (7)
  1. ELIQUIS [Suspect]
  2. LISINOPRIL [Concomitant]
  3. LIPITOR [Concomitant]
  4. BYSTOLIC [Concomitant]
  5. CHLORTALIDONE [Concomitant]
  6. POTASSIUM CHLORIDE [Concomitant]
     Dosage: 1DF: 20 UNIT:NOS
  7. PLAVIX [Concomitant]

REACTIONS (5)
  - Epistaxis [Unknown]
  - Heart rate increased [Unknown]
  - Nausea [Unknown]
  - Abdominal pain upper [Unknown]
  - Off label use [Unknown]
